FAERS Safety Report 4692770-2 (Version None)
Quarter: 2005Q2

REPORT INFORMATION
  Report Type: 
  Country: None (occurrence: None)
  Receive Date: 20050617
  Receipt Date: 20050608
  Transmission Date: 20051028
  Serious: Yes (Hospitalization, Other)
  Sender: FDA-Public Use
  Company Number: PHBS2005DE08242

PATIENT
  Age: 22 Year
  Sex: Male

DRUGS (1)
  1. DICLOFENAC [Suspect]
     Indication: MYALGIA
     Dosage: 50 MG, BID

REACTIONS (4)
  - BLOOD CREATINE PHOSPHOKINASE INCREASED [None]
  - MYALGIA [None]
  - MYOGLOBIN BLOOD INCREASED [None]
  - RHABDOMYOLYSIS [None]
